FAERS Safety Report 18033893 (Version 2)
Quarter: 2020Q3

REPORT INFORMATION
  Report Type: Spontaneous
  Country: JP (occurrence: JP)
  Receive Date: 20200716
  Receipt Date: 20200922
  Transmission Date: 20201103
  Serious: Yes (Hospitalization, Disabling)
  Sender: FDA-Public Use
  Company Number: JP-BIODELIVERY SCIENCES INTERNATIONAL-E2B_00001317

PATIENT
  Age: 49 Year
  Sex: Male
  Weight: 66 kg

DRUGS (21)
  1. GLUCOSE/IRON/MANGANESE/COPPER/ZINC/IODINE/VITAMINS NOS/AMINO ACIDS NOS/ELECTROLYTES NOS [Concomitant]
     Indication: NUTRITIONAL SUPPLEMENTATION
     Dosage: 1000 ML, 1 PER 12 HOUR
     Route: 041
     Dates: start: 20190822, end: 20190911
  2. FAMOTIDINE. [Concomitant]
     Active Substance: FAMOTIDINE
     Indication: GASTRITIS
     Dosage: 20 MG, 1 PER 12 HOUR
     Route: 041
     Dates: start: 20190801, end: 20190926
  3. DENOSUMAB [Concomitant]
     Active Substance: DENOSUMAB
     Indication: METASTASES TO BONE
     Dosage: 120 MG, QD
     Route: 058
     Dates: start: 20190727
  4. FENTANYL CITRATE. [Concomitant]
     Active Substance: FENTANYL CITRATE
     Indication: PAIN PROPHYLAXIS
     Dosage: 1 MG, QD
     Route: 062
     Dates: start: 20190730
  5. OSIMERTINIB MESILATE [Suspect]
     Active Substance: OSIMERTINIB
     Indication: NON-SMALL CELL LUNG CANCER
     Dosage: 80 MG, QD
     Route: 048
     Dates: start: 20190810, end: 20190912
  6. OSIMERTINIB MESILATE [Suspect]
     Active Substance: OSIMERTINIB
     Dosage: 40 MG, QD
     Route: 048
     Dates: start: 20190926
  7. PROCHLORPERAZINE MALEATE. [Concomitant]
     Active Substance: PROCHLORPERAZINE MALEATE
     Indication: NAUSEA
     Dosage: 5 MG, QD
     Route: 048
     Dates: start: 20190717, end: 20190829
  8. GLUCOSE/IRON/MANGANESE/COPPER/ZINC/IODINE/VITAMINS NOS/AMINO ACIDS NOS/ELECTROLYTES NOS [Concomitant]
     Indication: NUTRITIONAL SUPPLEMENTATION
     Dosage: 1000 ML, 1 PER 12 HOUR
     Route: 041
     Dates: start: 20190731, end: 20190821
  9. DOMPERIDONE [Concomitant]
     Active Substance: DOMPERIDONE
     Indication: PRODUCT USED FOR UNKNOWN INDICATION
     Dosage: 10 MG, PRN8
     Route: 048
     Dates: start: 20190815, end: 20190823
  10. NALDEMEDINE [Suspect]
     Active Substance: NALDEMEDINE
     Indication: CONSTIPATION
     Dosage: UNKNOWN; UNKNOWN
     Route: 048
     Dates: start: 20190717, end: 20190815
  11. PARACETAMOL [Concomitant]
     Active Substance: ACETAMINOPHEN
     Indication: PAIN PROPHYLAXIS
     Dosage: 500 MG, 1 PER 12 HOUR
     Route: 041
     Dates: start: 20190731, end: 20190821
  12. RAMELTEON [Concomitant]
     Active Substance: RAMELTEON
     Indication: INSOMNIA
     Dosage: 8 MG, QD
     Route: 048
     Dates: start: 20190911, end: 20191028
  13. GLUCOSE/THIAMINE HYDROCHLORIDE/AMINO ACIDS NOS/ELECTROLYTES NOS [Concomitant]
     Indication: NUTRITIONAL SUPPLEMENTATION
     Dosage: 500 ML, PRN8
     Route: 041
     Dates: start: 20190912, end: 20191008
  14. GLYCEROL/FRUCTOSE [Concomitant]
     Indication: BRAIN OEDEMA
     Dosage: 200 ML, QD
     Route: 041
     Dates: start: 20190730, end: 20191011
  15. OXYCODONE HYDROCHLORIDE. [Concomitant]
     Active Substance: OXYCODONE HYDROCHLORIDE
     Indication: BACK PAIN
     Dosage: UNKNOWN; UNKNOWN
     Route: 065
     Dates: start: 20190725
  16. COLECALCIFEROL/CALCIUM CARBONATE/MAGNESIUM CARBONATE [Suspect]
     Active Substance: CALCIUM CARBONATE\CHOLECALCIFEROL\MAGNESIUM CARBONATE
     Indication: DYSPHAGIA
     Dosage: 2 {DF}, QD
     Route: 048
     Dates: start: 20190726, end: 20190913
  17. FENTANYL CITRATE. [Concomitant]
     Active Substance: FENTANYL CITRATE
     Indication: PAIN PROPHYLAXIS
     Dosage: 100 UG, QD
     Route: 048
     Dates: start: 20190731
  18. LOXOPROFEN SODIUM [Concomitant]
     Active Substance: LOXOPROFEN SODIUM
     Indication: PAIN PROPHYLAXIS
     Dosage: UNKNOWN; UNKNOWN
     Route: 048
     Dates: start: 20190823, end: 20190913
  19. GLYCEROL/LECITHIN/GLYCINE MAX SEED OIL [Concomitant]
     Active Substance: GLYCERIN\LECITHIN\SOYBEAN OIL
     Indication: NUTRITIONAL SUPPLEMENTATION
     Dosage: 100 ML, QD
     Route: 041
     Dates: start: 20190910, end: 20191008
  20. OLANZAPINE. [Concomitant]
     Active Substance: OLANZAPINE
     Indication: PRODUCT USED FOR UNKNOWN INDICATION
     Dosage: UNKNOWN; UNKNOWN
     Route: 048
     Dates: start: 20190814
  21. PREGABALIN. [Concomitant]
     Active Substance: PREGABALIN
     Indication: PAIN PROPHYLAXIS
     Dosage: 75 MG, QD
     Route: 048
     Dates: start: 20190726, end: 20190829

REACTIONS (9)
  - Dysphagia [Not Recovered/Not Resolved]
  - Nausea [Recovering/Resolving]
  - Diarrhoea [Recovering/Resolving]
  - Haemoptysis [Recovered/Resolved]
  - Paralysis recurrent laryngeal nerve [Not Recovered/Not Resolved]
  - Hypocalcaemia [Recovered/Resolved]
  - Sepsis [Recovered/Resolved]
  - Liver disorder [Recovered/Resolved]
  - Device related infection [Recovered/Resolved]

NARRATIVE: CASE EVENT DATE: 20190814
